FAERS Safety Report 8157777-1 (Version None)
Quarter: 2012Q1

REPORT INFORMATION
  Report Type: 
  Country: None (occurrence: None)
  Receive Date: 20120222
  Receipt Date: 20120213
  Transmission Date: 20120608
  Serious: Yes (Hospitalization)
  Sender: FDA-Public Use
  Company Number: FR-ASTRAZENECA-2012SE04104

PATIENT
  Age: 12639 Day
  Sex: Male

DRUGS (5)
  1. QUETIAPINE FUMARATE [Suspect]
     Indication: PARANOIA
     Route: 048
     Dates: start: 20120114, end: 20120114
  2. QUETIAPINE FUMARATE [Suspect]
     Indication: PSYCHOTIC DISORDER
     Route: 048
     Dates: start: 20120114, end: 20120114
  3. VALIUM [Suspect]
     Indication: ANXIETY
     Route: 048
     Dates: start: 20120114
  4. PAROXETINE HYDROCHLORIDE [Suspect]
     Indication: ANXIETY
     Route: 048
     Dates: start: 20120114
  5. NOCTAMIDE [Suspect]
     Indication: INSOMNIA
     Route: 048
     Dates: start: 20120114

REACTIONS (2)
  - ORTHOSTATIC HYPOTENSION [None]
  - FALL [None]
